FAERS Safety Report 6264729-5 (Version None)
Quarter: 2009Q3

REPORT INFORMATION
  Report Type: 
  Country: None (occurrence: None)
  Receive Date: 20090710
  Receipt Date: 20090701
  Transmission Date: 20100115
  Serious: Yes (Other)
  Sender: FDA-Public Use
  Company Number: JP-PFIZER INC-2009231426

PATIENT
  Age: 75 Year

DRUGS (1)
  1. ZOLOFT [Suspect]
     Indication: DEPRESSION
     Dosage: 50 MG/DAY
     Route: 048
     Dates: start: 20090527, end: 20090612

REACTIONS (5)
  - CEREBRAL ATROPHY [None]
  - DELUSION [None]
  - DEMENTIA [None]
  - DEMENTIA WITH LEWY BODIES [None]
  - DEPRESSION [None]
